FAERS Safety Report 15170995 (Version 1)
Quarter: 2018Q3

REPORT INFORMATION
  Report Type: Spontaneous
  Country: US (occurrence: US)
  Receive Date: 20180720
  Receipt Date: 20180720
  Transmission Date: 20181010
  Serious: No
  Sender: FDA-Public Use
  Company Number: US-DUCHESNAY INC.-2052461

PATIENT
  Age: 75 Year
  Sex: Female

DRUGS (1)
  1. OSPHENA [Suspect]
     Active Substance: OSPEMIFENE
     Indication: DYSPAREUNIA
     Route: 048
     Dates: start: 20180426, end: 20180716

REACTIONS (2)
  - Pruritus [Recovering/Resolving]
  - Hot flush [Recovered/Resolved]

NARRATIVE: CASE EVENT DATE: 20180427
